FAERS Safety Report 4680967-7 (Version None)
Quarter: 2005Q2

REPORT INFORMATION
  Report Type: 
  Country: None (occurrence: None)
  Receive Date: 20050601
  Receipt Date: 20050519
  Transmission Date: 20051028
  Serious: Yes (Death, Hospitalization)
  Sender: FDA-Public Use
  Company Number: 041-0981-M0200022

PATIENT
  Age: 83 Year
  Sex: Male
  Weight: 60 kg

DRUGS (6)
  1. SORTIS (ATORVASTATIN) [Suspect]
     Indication: MIXED HYPERLIPIDAEMIA
     Dosage: 20 MG (DAILY), ORAL
     Route: 048
     Dates: start: 20011201, end: 20020130
  2. SORBIDILAT (ISOSORBIDE DINITRATE) [Concomitant]
  3. ASPIRIN [Concomitant]
  4. BECLOFORTE (BECLOMETASONE DIPROPIONATE) [Concomitant]
  5. FORADIL [Concomitant]
  6. OXAZEPAM [Concomitant]

REACTIONS (10)
  - ANOREXIA [None]
  - FAECES DISCOLOURED [None]
  - FATIGUE [None]
  - HEPATIC ENCEPHALOPATHY [None]
  - HEPATITIS CHOLESTATIC [None]
  - HEPATOCELLULAR DAMAGE [None]
  - HEPATORENAL SYNDROME [None]
  - JAUNDICE [None]
  - LEUKOCYTOSIS [None]
  - SEPSIS [None]
